FAERS Safety Report 8486975-2 (Version None)
Quarter: 2012Q3

REPORT INFORMATION
  Report Type: 
  Country: None (occurrence: None)
  Receive Date: 20120704
  Receipt Date: 20120623
  Transmission Date: 20120928
  Serious: Yes (Other)
  Sender: FDA-Public Use
  Company Number: PHHY2012MX051642

PATIENT
  Sex: Female

DRUGS (3)
  1. EXFORGE HCT [Suspect]
     Dosage: HALF TABLET (UNSPECIFIED) DAILY
     Dates: start: 20100601
  2. EXFORGE HCT [Suspect]
     Indication: HYPERTENSION
     Dosage: 1 TABLET (160/5/12.5 MG) DAILY
     Dates: start: 20100601
  3. ASPIRIN [Concomitant]
     Dosage: 100 MG, DAILY
     Dates: start: 20120501

REACTIONS (6)
  - NASAL CONGESTION [None]
  - MALAISE [None]
  - WRONG TECHNIQUE IN DRUG USAGE PROCESS [None]
  - LUNG DISORDER [None]
  - INFARCTION [None]
  - DYSPNOEA [None]
